FAERS Safety Report 17251316 (Version 2)
Quarter: 2020Q1

REPORT INFORMATION
  Report Type: Spontaneous
  Country: US (occurrence: US)
  Receive Date: 20200109
  Receipt Date: 20200206
  Transmission Date: 20200409
  Serious: No
  Sender: FDA-Public Use
  Company Number: US-HTU-2019US020034

PATIENT
  Sex: Female

DRUGS (2)
  1. OMEPRAZOLE. [Concomitant]
     Active Substance: OMEPRAZOLE
     Indication: HYPERTENSION
  2. VALCHLOR [Suspect]
     Active Substance: MECHLORETHAMINE
     Indication: CUTANEOUS T-CELL LYMPHOMA
     Dosage: UNK, QOD
     Route: 061
     Dates: start: 201911

REACTIONS (4)
  - Intentional dose omission [Unknown]
  - Application site discolouration [Not Recovered/Not Resolved]
  - Application site pain [Recovered/Resolved]
  - Off label use [Unknown]
